FAERS Safety Report 8525935-X (Version None)
Quarter: 2012Q3

REPORT INFORMATION
  Report Type: 
  Country: None (occurrence: None)
  Receive Date: 20120720
  Receipt Date: 20120717
  Transmission Date: 20120928
  Serious: No
  Sender: FDA-Public Use
  Company Number: US-PFIZER INC-2012172983

PATIENT
  Sex: Female

DRUGS (4)
  1. LYRICA [Suspect]
     Indication: FIBROMYALGIA
     Dosage: 75 MG, 2X/DAY
     Route: 048
     Dates: start: 20120709, end: 20120710
  2. LAMISIL [Concomitant]
     Dosage: UNK
  3. PARNATE [Interacting]
     Indication: DEPRESSION
     Dosage: UNK
  4. THYROID TAB [Concomitant]
     Dosage: UNK

REACTIONS (4)
  - DIZZINESS [None]
  - COLD SWEAT [None]
  - NAUSEA [None]
  - DRUG INTERACTION [None]
